FAERS Safety Report 10235035 (Version 2)
Quarter: 2014Q2

REPORT INFORMATION
  Report Type: Report from Study
  Country: US (occurrence: US)
  Receive Date: 20140613
  Receipt Date: 20140613
  Transmission Date: 20141212
  Serious: Yes (Hospitalization)
  Sender: FDA-Public Use
  Company Number: PHEH2013US010292

PATIENT
  Sex: Female

DRUGS (6)
  1. EXELON PATCH [Suspect]
     Dosage: 4.6 MG, UNK
     Route: 062
  2. EXELON PATCH [Suspect]
     Dosage: TWO 4.6 MG PATCHES
     Route: 062
  3. EXELON PATCH [Suspect]
     Dosage: 9.5 MG, UNK
     Route: 062
  4. NAMENDA [Concomitant]
  5. CRESTOR [Concomitant]
  6. LEVOXYL [Concomitant]

REACTIONS (2)
  - Pneumonia [Unknown]
  - Drug prescribing error [Unknown]
